FAERS Safety Report 6690414 (Version 8)
Quarter: 2014Q4

REPORT INFORMATION
  Report Type: Spontaneous
  Country: US (occurrence: None)
  Receive Date: 20080620
  Receipt Date: 20141210
  Transmission Date: 20150529
  Serious: Yes (Other)
  Sender: FDA-Public Use
  Company Number: JPI-P-003916

PATIENT
  Age: 39 Year
  Sex: Female
  Weight: 68.2 kg

DRUGS (12)
  1. XYREM [Suspect]
     Active Substance: SODIUM OXYBATE
     Indication: SOMNOLENCE
     Dosage: SEE IMAGE
     Route: 048
     Dates: start: 200803, end: 200804
  2. LORATADINE (LORATADINE) [Concomitant]
  3. VALIUM [Concomitant]
     Active Substance: DIAZEPAM
  4. OXYCONTIN [Concomitant]
     Active Substance: OXYCODONE HYDROCHLORIDE
  5. ALPRAZOLAM (ALPRAZOLAM) [Suspect]
     Active Substance: ALPRAZOLAM
     Indication: PRODUCT USED FOR UNKNOWN INDICATION
  6. DIAZEPAM (DIAZEPAM) [Suspect]
     Active Substance: DIAZEPAM
     Indication: PRODUCT USED FOR UNKNOWN INDICATION
  7. ACETAMINOPHEN (PARACETAMOL) [Concomitant]
     Active Substance: ACETAMINOPHEN
  8. ATENOLOL (ATENOLOL) [Concomitant]
     Active Substance: ATENOLOL
  9. PANCRELIPASE (PANCREALIPASE) [Concomitant]
  10. CONJUGATED ESTROGENS / MEDROXYPROGESTERONE ACETATE (POVELLA-14) [Concomitant]
  11. XANAX [Concomitant]
     Active Substance: ALPRAZOLAM
  12. XYREM [Suspect]
     Active Substance: SODIUM OXYBATE
     Indication: NARCOLEPSY
     Dosage: SEE IMAGE
     Route: 048
     Dates: start: 200803, end: 200804

REACTIONS (22)
  - Neuralgia [None]
  - Hypoaesthesia [None]
  - Oedema peripheral [None]
  - Feeling abnormal [None]
  - Heart rate increased [None]
  - Condition aggravated [None]
  - Blood oestrogen increased [None]
  - Therapeutic response decreased [None]
  - Intervertebral disc protrusion [None]
  - Mitochondrial myopathy [None]
  - Rash [None]
  - Dyspepsia [None]
  - Blood follicle stimulating hormone increased [None]
  - Hepatic steatosis [None]
  - Fatigue [None]
  - Somnambulism [None]
  - Activities of daily living impaired [None]
  - Back pain [None]
  - Initial insomnia [None]
  - Sensory loss [None]
  - Muscular weakness [None]
  - Amenorrhoea [None]

NARRATIVE: CASE EVENT DATE: 200803
